FAERS Safety Report 7547592-1 (Version None)
Quarter: 2011Q2

REPORT INFORMATION
  Report Type: 
  Country: None (occurrence: None)
  Receive Date: 20110614
  Receipt Date: 20110601
  Transmission Date: 20111010
  Serious: Yes (Hospitalization)
  Sender: FDA-Public Use
  Company Number: CA-UCBSA-034586

PATIENT

DRUGS (2)
  1. VIMPAT [Suspect]
     Indication: COMPLEX PARTIAL SEIZURES
  2. VIMPAT [Suspect]
     Indication: PARTIAL SEIZURES WITH SECONDARY GENERALISATION

REACTIONS (2)
  - AGGRESSION [None]
  - CONVULSION [None]
